FAERS Safety Report 5967738-6 (Version None)
Quarter: 2008Q4

REPORT INFORMATION
  Report Type: 
  Country: None (occurrence: None)
  Receive Date: 20081126
  Receipt Date: 20081121
  Transmission Date: 20090506
  Serious: Yes (Death, Other)
  Sender: FDA-Public Use
  Company Number: FI-WYE-G02641608

PATIENT
  Age: 40 Year
  Sex: Male

DRUGS (1)
  1. TYGACIL [Suspect]
     Indication: PERITONEAL INFECTION
     Dosage: UNSPECIFIED
     Route: 042
     Dates: start: 20080101, end: 20080101

REACTIONS (2)
  - DEATH [None]
  - LACTIC ACIDOSIS [None]
